FAERS Safety Report 8931983 (Version 1)
Quarter: 2012Q4

REPORT INFORMATION
  Report Type: 
  Country: US (occurrence: US)
  Receive Date: 20121128
  Receipt Date: 20121128
  Transmission Date: 20130627
  Serious: Yes (Other)
  Sender: FDA-Public Use
  Company Number: US-PFIZER INC-2012295549

PATIENT
  Age: 56 Year
  Weight: 98.41 kg

DRUGS (21)
  1. EFFEXOR XR [Suspect]
     Dosage: 300 mg, 1x/day
     Route: 048
     Dates: start: 20120521
  2. NORVASC [Suspect]
     Dosage: 10 mg, 1x/day (1 tab)
     Route: 048
     Dates: start: 20111102
  3. DULERA [Concomitant]
     Dosage: 200-5 mcg/actuation (1 puff), 2x/day
     Route: 055
     Dates: start: 20121019
  4. DITROPAN [Concomitant]
     Dosage: 5 mg, 1x/day
     Route: 048
     Dates: start: 20120920
  5. ELAVIL [Concomitant]
     Dosage: 10 mg, every night at bedtime
     Route: 048
     Dates: start: 20120829
  6. LYRICA [Concomitant]
     Dosage: 75 mg, 2x/day
     Route: 048
  7. DEXILANT [Concomitant]
     Dosage: 60 mg, 1x/day
     Route: 048
  8. FENOFIBRATE [Concomitant]
     Dosage: 134 mg, 1x/day (1 cap)
     Route: 048
     Dates: start: 20120424
  9. SINGULAIR [Concomitant]
     Dosage: 10 mg, every night at bedtime
     Route: 048
     Dates: start: 20120322
  10. NASONEX [Concomitant]
     Dosage: 50 mcg/actuation, take 2 sprays, 1x/day
     Route: 045
     Dates: start: 20120207
  11. VENTOLIN [Concomitant]
     Dosage: 90 mcg/actuation, take 2 puffs
     Route: 055
     Dates: start: 20120104
  12. ACTOS [Concomitant]
     Dosage: 30 mg, 1x/day
     Route: 048
     Dates: start: 20111122
  13. GLUCOPHAGE [Concomitant]
     Dosage: 500 mg, 2x/day
     Route: 048
     Dates: start: 20111114
  14. NORCO [Concomitant]
     Dosage: 10-325mg (1 tab), every 3 hours
     Route: 048
  15. TOPAMAX [Concomitant]
     Dosage: 100 mg, 2x/day
     Route: 048
  16. DELTASONE [Concomitant]
     Dosage: 20mg/tablet, 3 daily
     Route: 048
     Dates: start: 20121019, end: 20121021
  17. DELTASONE [Concomitant]
     Dosage: 20mg/tablet, 2 daily
     Route: 048
     Dates: start: 20121022, end: 20121024
  18. DELTASONE [Concomitant]
     Dosage: 20mg/tablet, 1 daily
     Route: 048
     Dates: start: 20121025, end: 20121027
  19. DELTASONE [Concomitant]
     Dosage: 20mg/tablet, 1/2 daily
     Route: 048
     Dates: start: 20121028, end: 20121030
  20. HYZAAR [Concomitant]
     Dosage: 100-25mg (1 tablet), 1x/day
     Route: 048
     Dates: start: 20120302
  21. PROVENTIL [Concomitant]
     Dosage: 2.5 mg/0.5 mL, take 0.5 ml, 3x/day
     Route: 055
     Dates: start: 20110321

REACTIONS (3)
  - Asthma [Unknown]
  - Chronic obstructive pulmonary disease [Unknown]
  - Blood pressure increased [Unknown]
